FAERS Safety Report 9768478 (Version 1)
Quarter: 2013Q4

REPORT INFORMATION
  Report Type: Report from Study
  Country: TR (occurrence: TR)
  Receive Date: 20131217
  Receipt Date: 20131217
  Transmission Date: 20140711
  Serious: Yes (Hospitalization, Other)
  Sender: FDA-Public Use
  Company Number: PHHY2013TR145257

PATIENT
  Age: 69 Year
  Sex: Female
  Weight: 120 kg

DRUGS (1)
  1. OMNITROPE [Suspect]
     Dosage: 6 MG, QD
     Route: 058
     Dates: start: 20131122, end: 20131209

REACTIONS (3)
  - Renal failure [Recovering/Resolving]
  - Incorrect dose administered [Recovering/Resolving]
  - Drug prescribing error [Recovering/Resolving]
